FAERS Safety Report 19394222 (Version 1)
Quarter: 2021Q2

REPORT INFORMATION
  Report Type: Spontaneous
  Country: US (occurrence: US)
  Receive Date: 20210609
  Receipt Date: 20210609
  Transmission Date: 20210717
  Serious: Yes (Life-Threatening, Hospitalization, Disabling, Other)
  Sender: FDA-Public Use
  Company Number: None

PATIENT
  Age: 25 Year
  Sex: Male
  Weight: 72 kg

DRUGS (1)
  1. ABILIFY [Suspect]
     Active Substance: ARIPIPRAZOLE

REACTIONS (5)
  - Obsessive-compulsive disorder [None]
  - Amnesia [None]
  - Cerebral ischaemia [None]
  - Brain injury [None]
  - Accidental overdose [None]

NARRATIVE: CASE EVENT DATE: 20180310
